FAERS Safety Report 7014693-6 (Version None)
Quarter: 2010Q3

REPORT INFORMATION
  Report Type: 
  Country: None (occurrence: None)
  Receive Date: 20100927
  Receipt Date: 20100920
  Transmission Date: 20110219
  Serious: Yes (Death, Other)
  Sender: FDA-Public Use
  Company Number: FI-ROCHE-728489

PATIENT

DRUGS (3)
  1. MYCOPHENOLATE MOFETIL [Suspect]
     Route: 065
  2. VALGANCICLOVIR HCL [Suspect]
     Route: 048
  3. CYCLOSPORINE [Suspect]
     Route: 065

REACTIONS (9)
  - ACUTE MYOCARDIAL INFARCTION [None]
  - BREAST CANCER METASTATIC [None]
  - CEREBRAL HAEMATOMA [None]
  - CYTOMEGALOVIRUS INFECTION [None]
  - DRUG INEFFECTIVE [None]
  - GASTROINTESTINAL DISORDER [None]
  - HYDRONEPHROSIS [None]
  - HYPOTHERMIA [None]
  - LEUKOPENIA [None]
